FAERS Safety Report 5016589-8 (Version None)
Quarter: 2006Q2

REPORT INFORMATION
  Report Type: 
  Country: None (occurrence: None)
  Receive Date: 20060414
  Receipt Date: 20050607
  Transmission Date: 20061013
  Serious: Yes (Death)
  Sender: FDA-Public Use
  Company Number: US-JNJFOC20050404231

PATIENT
  Age: 73 Year
  Sex: Female
  Weight: 81.1939 kg

DRUGS (8)
  1. TRAMADOL HCL [Suspect]
     Indication: OSTEOARTHRITIS
     Dosage: 2 DOSE (S), 3 IN 1 DAY, ORAL
     Route: 048
  2. CELEXA [Suspect]
     Indication: DEPRESSION
     Dosage: 60 MG, 1 IN 1 DAY
  3. ACETAMINOPHEN (UNSPECIFIED) [Concomitant]
  4. BUSPAR [Concomitant]
  5. ALLOPURINOL [Concomitant]
  6. VERAPAMIL [Concomitant]
  7. ZANTAC [Concomitant]
  8. ZOCOR [Concomitant]

REACTIONS (1)
  - MULTIPLE DRUG OVERDOSE [None]
